FAERS Safety Report 26101756 (Version 3)
Quarter: 2025Q4

REPORT INFORMATION
  Report Type: Report from Study
  Country: US (occurrence: US)
  Receive Date: 20251128
  Receipt Date: 20251229
  Transmission Date: 20260118
  Serious: No
  Sender: BIOVITRUM
  Company Number: US-BIOVITRUM-2025-US-016516

PATIENT
  Age: 46 Year
  Sex: Female

DRUGS (1)
  1. KINERET [Suspect]
     Active Substance: ANAKINRA
     Indication: Product used for unknown indication
     Dosage: DOSE:100 MG/.067ML, 1X1 DAILY
     Dates: end: 202505

REACTIONS (1)
  - Drug ineffective [Unknown]
